FAERS Safety Report 9648190 (Version 1)
Quarter: 2013Q4

REPORT INFORMATION
  Report Type: Spontaneous
  Country: JP (occurrence: JP)
  Receive Date: 20131028
  Receipt Date: 20131028
  Transmission Date: 20140711
  Serious: Yes (Hospitalization)
  Sender: FDA-Public Use
  Company Number: JP-BAYER-2013-128073

PATIENT
  Age: 96 Year
  Sex: Female
  Weight: 39.91 kg

DRUGS (16)
  1. BAYASPIRIN [Suspect]
     Indication: ATRIAL FIBRILLATION
     Dosage: 100 MG, QD
     Route: 048
     Dates: start: 20130928, end: 20131008
  2. GASTER [Suspect]
     Dosage: 20 MG, QD
     Dates: start: 20130916, end: 20130924
  3. ANHIBA [Concomitant]
     Route: 054
  4. TAKEPRON [Concomitant]
     Route: 048
  5. FRANDOL [Concomitant]
     Route: 062
  6. MYSLEE [Concomitant]
     Route: 048
  7. ALOSENN [Concomitant]
     Route: 048
  8. CEFMETAZOLE SODIUM [Concomitant]
  9. BUFFERIN [Concomitant]
     Indication: ATRIAL FIBRILLATION
     Route: 048
  10. BLOPRESS [Concomitant]
     Route: 048
  11. MAGMITT [Concomitant]
     Route: 048
  12. DIART [Concomitant]
     Route: 048
  13. LAXOBERON [Concomitant]
     Route: 048
  14. NOVO HEPARIN AVENTIS [Concomitant]
     Dosage: UNK
     Dates: start: 20130918, end: 20130930
  15. GABEXATE MESILATE [Concomitant]
  16. PACETCOOL [Concomitant]

REACTIONS (1)
  - Thrombocytopenia [Recovering/Resolving]
